FAERS Safety Report 4870726-4 (Version None)
Quarter: 2005Q4

REPORT INFORMATION
  Report Type: 
  Country: None (occurrence: None)
  Receive Date: 20051228
  Receipt Date: 20051216
  Transmission Date: 20060501
  Serious: Yes (Other)
  Sender: FDA-Public Use
  Company Number: 2005-CZ-01430

PATIENT
  Age: 77 Year
  Sex: Female

DRUGS (6)
  1. FLUOXETINE [Suspect]
     Indication: DEPRESSION
     Dosage: 40 MG OM, ORAL
     Route: 048
  2. ARIPIPRAZOLE [Suspect]
     Dosage: REDUCED, ORAL
     Route: 048
     Dates: start: 20051025
  3. LITHIUM [Concomitant]
  4. LANSOPRAZOLE [Concomitant]
  5. CEFRADINE [Concomitant]
  6. ESTRADIOL VALERATE [Concomitant]

REACTIONS (4)
  - COGWHEEL RIGIDITY [None]
  - DIZZINESS [None]
  - DRUG INTERACTION [None]
  - TREMOR [None]
